FAERS Safety Report 15585176 (Version 1)
Quarter: 2018Q4

REPORT INFORMATION
  Report Type: Spontaneous
  Country: US (occurrence: US)
  Receive Date: 20181102
  Receipt Date: 20181102
  Transmission Date: 20190205
  Serious: No
  Sender: FDA-Public Use
  Company Number: US-MIST-TIR-2018-0278

PATIENT
  Age: 65 Year
  Sex: Female

DRUGS (3)
  1. VITAMIN D [Suspect]
     Active Substance: CHOLECALCIFEROL
     Indication: PRODUCT USED FOR UNKNOWN INDICATION
     Dates: end: 20180310
  2. TIROSINT [Suspect]
     Active Substance: LEVOTHYROXINE SODIUM
     Indication: HYPOTHYROIDISM
     Dosage: ONE 25MCG AND ONE 13MCG CAPSULE DAILY
     Route: 048
     Dates: start: 201801
  3. TIROSINT [Suspect]
     Active Substance: LEVOTHYROXINE SODIUM
     Indication: HYPOTHYROIDISM
     Dosage: ONE 25MCG AND ONE 13MCG CAPSULE DAILY
     Route: 048
     Dates: start: 201801

REACTIONS (4)
  - Dry mouth [Recovered/Resolved]
  - Dark circles under eyes [Unknown]
  - Dysgeusia [Recovered/Resolved]
  - Fatigue [Recovering/Resolving]

NARRATIVE: CASE EVENT DATE: 201801
